FAERS Safety Report 9627292 (Version 1)
Quarter: 2013Q4

REPORT INFORMATION
  Report Type: Not Available
  Country: US (occurrence: US)
  Receive Date: 20131016
  Receipt Date: 20131016
  Transmission Date: 20140711
  Serious: Yes (Other)
  Sender: FDA-Public Use
  Company Number: US-LUNDBECK-DKLU1085280

PATIENT
  Sex: Female

DRUGS (5)
  1. SABRIL (TABLET) [Suspect]
     Indication: EPILEPSY
     Dates: start: 20120322
  2. SABRIL (TABLET) [Suspect]
     Indication: COMPLEX PARTIAL SEIZURES
     Dates: start: 20120322
  3. SABRIL (TABLET) [Suspect]
     Dates: start: 20120322
  4. CLONAZEPAM [Concomitant]
     Indication: PRODUCT USED FOR UNKNOWN INDICATION
  5. LORAZEPAM [Concomitant]
     Indication: PRODUCT USED FOR UNKNOWN INDICATION

REACTIONS (3)
  - Convulsion [Unknown]
  - Prescribed overdose [Unknown]
  - Drug dose omission [Unknown]
